FAERS Safety Report 7183166-2 (Version None)
Quarter: 2010Q4

REPORT INFORMATION
  Report Type: 
  Country: None (occurrence: None)
  Receive Date: 20101208
  Receipt Date: 20101123
  Transmission Date: 20110411
  Serious: Yes (Hospitalization)
  Sender: FDA-Public Use
  Company Number: DEP_00437_2010

PATIENT
  Age: 78 Year
  Sex: Female

DRUGS (9)
  1. CIPROFLOXACIN [Suspect]
     Indication: DIVERTICULITIS
     Dosage: (500 MG BID ORAL)
     Route: 048
     Dates: start: 20100709, end: 20100718
  2. CIPROFLOXACIN [Suspect]
     Indication: OFF LABEL USE
     Dosage: (500 MG BID ORAL)
     Route: 048
     Dates: start: 20100709, end: 20100718
  3. RAMILICH (RAMILICH - RAMIPRIL) 5 MG (NOT SPECIFIED) [Suspect]
     Indication: HYPERTENSION
     Dosage: (5 MG BID ORAL)
     Route: 048
     Dates: start: 20100501
  4. TORASEMID (TORASEMID - TORASEMIDE) 5 MG (NOT SPECIFIED) [Suspect]
     Indication: HYPERTENSION
     Dosage: (5 MG QD ORAL)
     Route: 048
     Dates: start: 20100501
  5. METRONIDAZOLE [Concomitant]
  6. METOPROLOL TARTRATE [Concomitant]
  7. PANZYTRAT /00014701/ [Concomitant]
  8. LEVOTHYROXINE SODIUM [Concomitant]
  9. ASPIRIN [Concomitant]

REACTIONS (3)
  - DEHYDRATION [None]
  - FLUID INTAKE REDUCED [None]
  - RENAL FAILURE ACUTE [None]
